FAERS Safety Report 14032128 (Version 2)
Quarter: 2017Q4

REPORT INFORMATION
  Report Type: Spontaneous
  Country: AT (occurrence: AT)
  Receive Date: 20171003
  Receipt Date: 20171226
  Transmission Date: 20180321
  Serious: Yes (Other)
  Sender: FDA-Public Use
  Company Number: AT-ASTRAZENECA-2017SE98426

PATIENT
  Age: 42 Year
  Sex: Male
  Weight: 89 kg

DRUGS (27)
  1. MIRTABENE [Interacting]
     Active Substance: MIRTAZAPINE
     Route: 048
     Dates: start: 20150409, end: 20150416
  2. TRITTICO RETARD [Interacting]
     Active Substance: TRAZODONE HYDROCHLORIDE
     Route: 048
     Dates: start: 20150317
  3. DEPAKINE CR [Interacting]
     Active Substance: VALPROATE SODIUM
     Route: 048
     Dates: start: 2015
  4. JATROSOM (TRANYLCYPROMINE SULFATE\TRIFLUOPERAZINE HYDROCHLORIDE) [Interacting]
     Active Substance: TRANYLCYPROMINE SULFATE\TRIFLUOPERAZINE HYDROCHLORIDE
     Route: 065
     Dates: start: 20150407, end: 20150413
  5. DOMINAL (PROTHIPENDYL HYDROCHLORIDE) [Concomitant]
     Active Substance: PROTHIPENDYL HYDROCHLORIDE
     Dates: start: 20150323, end: 20150323
  6. DOMINAL (PROTHIPENDYL HYDROCHLORIDE) [Concomitant]
     Active Substance: PROTHIPENDYL HYDROCHLORIDE
     Dates: start: 20150408, end: 20150408
  7. LYRICA [Interacting]
     Active Substance: PREGABALIN
     Route: 048
     Dates: start: 20150318, end: 20150318
  8. DOMINAL (PROTHIPENDYL HYDROCHLORIDE) [Concomitant]
     Active Substance: PROTHIPENDYL HYDROCHLORIDE
     Dates: start: 20150413, end: 20150413
  9. LYRICA [Interacting]
     Active Substance: PREGABALIN
     Route: 048
     Dates: start: 20150317, end: 20150317
  10. JATROSOM (TRANYLCYPROMINE SULFATE\TRIFLUOPERAZINE HYDROCHLORIDE) [Interacting]
     Active Substance: TRANYLCYPROMINE SULFATE\TRIFLUOPERAZINE HYDROCHLORIDE
     Route: 065
     Dates: start: 20150323, end: 20150406
  11. DOMINAL (PROTHIPENDYL HYDROCHLORIDE) [Concomitant]
     Active Substance: PROTHIPENDYL HYDROCHLORIDE
     Dates: start: 20150331, end: 20150331
  12. TRITTICO RETARD [Interacting]
     Active Substance: TRAZODONE HYDROCHLORIDE
     Route: 048
     Dates: start: 2015, end: 20150316
  13. JATROSOM (TRANYLCYPROMINE SULFATE\TRIFLUOPERAZINE HYDROCHLORIDE) [Interacting]
     Active Substance: TRANYLCYPROMINE SULFATE\TRIFLUOPERAZINE HYDROCHLORIDE
     Route: 065
     Dates: start: 20150414
  14. FERROG-GRADUMET [Concomitant]
     Dosage: 1 TBL, DAILY
  15. NOCTAMID [Concomitant]
     Active Substance: LORMETAZEPAM
     Dates: start: 20150331
  16. SEROQUEL [Interacting]
     Active Substance: QUETIAPINE FUMARATE
     Route: 048
     Dates: start: 20150318
  17. DOMINAL (PROTHIPENDYL HYDROCHLORIDE) [Concomitant]
     Active Substance: PROTHIPENDYL HYDROCHLORIDE
     Dates: start: 20150404, end: 20150404
  18. PROXEN [Interacting]
     Active Substance: NAPROXEN SODIUM
     Route: 065
     Dates: start: 20150327
  19. MORPHINE SULFATE. [Interacting]
     Active Substance: MORPHINE SULFATE
     Dosage: 480MG, DAILY, NON-AZ DRUG
     Route: 065
     Dates: start: 2014
  20. LYRICA [Interacting]
     Active Substance: PREGABALIN
     Route: 048
     Dates: start: 20150319
  21. PANTOLOC [Concomitant]
     Active Substance: PANTOPRAZOLE SODIUM
     Dates: start: 2015
  22. NICORETTE [Concomitant]
     Active Substance: NICOTINE
     Dosage: 25MG/16H, DAILY
     Dates: start: 20150321
  23. DOMINAL (PROTHIPENDYL HYDROCHLORIDE) [Concomitant]
     Active Substance: PROTHIPENDYL HYDROCHLORIDE
     Dates: start: 20150409, end: 20150409
  24. NOCTAMID [Concomitant]
     Active Substance: LORMETAZEPAM
     Dates: start: 20150330, end: 20150330
  25. SEROQUEL [Suspect]
     Active Substance: QUETIAPINE FUMARATE
     Route: 048
     Dates: start: 20150317, end: 20150317
  26. ANTIFLAT [Concomitant]
     Route: 048
     Dates: start: 20150328
  27. DOMINAL (PROTHIPENDYL HYDROCHLORIDE) [Concomitant]
     Active Substance: PROTHIPENDYL HYDROCHLORIDE
     Dates: start: 20150319, end: 20150319

REACTIONS (2)
  - Drug interaction [Unknown]
  - Oedema peripheral [Recovered/Resolved]

NARRATIVE: CASE EVENT DATE: 20150411
